FAERS Safety Report 9353406 (Version 2)
Quarter: 2013Q3

REPORT INFORMATION
  Report Type: Spontaneous
  Country: US (occurrence: US)
  Receive Date: 20130618
  Receipt Date: 20130722
  Transmission Date: 20140515
  Serious: Yes (Other)
  Sender: FDA-Public Use
  Company Number: US-JNJFOC-20130606975

PATIENT
  Age: 42 Year
  Sex: Male
  Weight: 95.26 kg

DRUGS (1)
  1. STELARA [Suspect]
     Indication: PSORIASIS
     Route: 058
     Dates: start: 201204, end: 201304

REACTIONS (1)
  - Acute myocardial infarction [Recovered/Resolved]
